FAERS Safety Report 8303412-9 (Version None)
Quarter: 2012Q2

REPORT INFORMATION
  Report Type: 
  Country: None (occurrence: None)
  Receive Date: 20120423
  Receipt Date: 20120423
  Transmission Date: 20120825
  Serious: No
  Sender: FDA-Public Use
  Company Number: US-PFIZER INC-2012061300

PATIENT
  Sex: Female
  Weight: 181.41 kg

DRUGS (4)
  1. ZITHROMAX [Suspect]
     Indication: INFECTION
  2. ZITHROMAX [Suspect]
     Indication: LYME DISEASE
     Dosage: 250 MG, 1X/DAY
     Route: 048
     Dates: start: 20100101, end: 20120101
  3. AZITHROMYCIN [Suspect]
     Indication: LYME DISEASE
     Dosage: 250 MG, 1X/DAY
     Route: 048
     Dates: start: 20120301
  4. AZITHROMYCIN [Suspect]
     Indication: INFECTION

REACTIONS (6)
  - CONSTIPATION [None]
  - DRUG INEFFECTIVE [None]
  - ASTHENIA [None]
  - ABDOMINAL DISTENSION [None]
  - FEELING ABNORMAL [None]
  - HEADACHE [None]
